FAERS Safety Report 22187235 (Version 1)
Quarter: 2023Q2

REPORT INFORMATION
  Report Type: Spontaneous
  Country: US (occurrence: US)
  Receive Date: 20230407
  Receipt Date: 20230407
  Transmission Date: 20230722
  Serious: Yes (Other)
  Sender: FDA-Public Use
  Company Number: US-BRISTOL-MYERS SQUIBB COMPANY-2023-045567

PATIENT
  Age: 74 Year
  Sex: Female

DRUGS (1)
  1. POMALYST [Suspect]
     Active Substance: POMALIDOMIDE
     Indication: Prophylaxis
     Route: 048

REACTIONS (8)
  - Ocular neoplasm [Not Recovered/Not Resolved]
  - Constipation [Unknown]
  - Fatigue [Unknown]
  - Somnolence [Unknown]
  - Pain [Unknown]
  - Spinal compression fracture [Unknown]
  - Depression [Unknown]
  - Nausea [Unknown]
